FAERS Safety Report 18654082 (Version 1)
Quarter: 2020Q4

REPORT INFORMATION
  Report Type: Spontaneous
  Country: ES (occurrence: ES)
  Receive Date: 20201223
  Receipt Date: 20201223
  Transmission Date: 20210114
  Serious: Yes (Hospitalization)
  Sender: FDA-Public Use
  Company Number: ES-JNJFOC-20201228297

PATIENT
  Sex: Male

DRUGS (1)
  1. INVEGA [Suspect]
     Active Substance: PALIPERIDONE
     Indication: PRODUCT USED FOR UNKNOWN INDICATION
     Dosage: 1/2 TABLET IN THE MORNING AND 1/2 IN THE EVENING, BUT IT HAS BEEN RECENTLY CHANGED TO 1/4 IN THE MOR
     Route: 048

REACTIONS (4)
  - Product colour issue [Unknown]
  - Product prescribing error [Unknown]
  - Off label use [Unknown]
  - Hospitalisation [Unknown]
